FAERS Safety Report 4959111-4 (Version None)
Quarter: 2006Q1

REPORT INFORMATION
  Report Type: 
  Country: None (occurrence: None)
  Receive Date: 20060331
  Receipt Date: 20060327
  Transmission Date: 20060701
  Serious: Yes (Death)
  Sender: FDA-Public Use
  Company Number: PHEH2006US04091

PATIENT
  Age: 50 Year
  Sex: Female

DRUGS (2)
  1. RITALIN [Suspect]
  2. SOMA [Concomitant]

REACTIONS (1)
  - DEATH [None]
